FAERS Safety Report 8352215-8 (Version None)
Quarter: 2012Q2

REPORT INFORMATION
  Report Type: 
  Country: None (occurrence: None)
  Receive Date: 20120511
  Receipt Date: 20120503
  Transmission Date: 20120825
  Serious: Yes (Hospitalization)
  Sender: FDA-Public Use
  Company Number: US-CELGENEUS-163-21880-12040093

PATIENT
  Sex: Female
  Weight: 99.88 kg

DRUGS (7)
  1. CALCIUM [Concomitant]
     Route: 065
  2. REVLIMID [Suspect]
     Indication: MULTIPLE MYELOMA
     Dosage: 25 MILLIGRAM
     Route: 048
     Dates: start: 20120214, end: 20120327
  3. LOVAZA [Concomitant]
     Route: 065
  4. PRAVASTATIN [Concomitant]
     Route: 065
  5. VESICARE [Concomitant]
     Route: 065
  6. IBUPROFEN [Concomitant]
     Route: 065
  7. VITAMIN D [Concomitant]
     Route: 065

REACTIONS (4)
  - DEEP VEIN THROMBOSIS [None]
  - PULMONARY EMBOLISM [None]
  - URINARY TRACT INFECTION [None]
  - COLONIC STENOSIS [None]
